FAERS Safety Report 6189849-5 (Version None)
Quarter: 2009Q2

REPORT INFORMATION
  Report Type: 
  Country: None (occurrence: None)
  Receive Date: 20090512
  Receipt Date: 20090512
  Transmission Date: 20091009
  Serious: Yes (Life-Threatening, Hospitalization)
  Sender: FDA-Public Use
  Company Number: None

PATIENT
  Age: 68 Year
  Sex: Male
  Weight: 106.5953 kg

DRUGS (2)
  1. LORAZEPAM [Suspect]
     Indication: SEDATION
     Dosage: 2MG IV BOLUS
     Route: 040
     Dates: start: 20090219, end: 20090315
  2. LORAZEPAM [Suspect]
     Dosage: 1MG PO
     Route: 048
     Dates: start: 20090219, end: 20090315

REACTIONS (5)
  - HALLUCINATION [None]
  - MENTAL STATUS CHANGES [None]
  - PARADOXICAL DRUG REACTION [None]
  - PSYCHOTIC DISORDER [None]
  - RESTLESSNESS [None]
